FAERS Safety Report 7355572-4 (Version None)
Quarter: 2011Q1

REPORT INFORMATION
  Report Type: 
  Country: None (occurrence: None)
  Receive Date: 20110316
  Receipt Date: 20100928
  Transmission Date: 20110831
  Serious: Yes (Hospitalization)
  Sender: FDA-Public Use
  Company Number: B0676931A

PATIENT
  Sex: Female

DRUGS (5)
  1. VALTREX [Suspect]
     Dosage: 3000MG PER DAY
     Route: 048
     Dates: start: 20100921, end: 20100925
  2. LOSARTAN POTASSIUM AND HYDROCHLOROTHIAZIDE [Concomitant]
     Indication: HYPERTENSION
     Dosage: 1IUAX PER DAY
     Route: 048
     Dates: end: 20100925
  3. CRAVIT [Concomitant]
     Dosage: 100MG PER DAY
     Route: 048
     Dates: start: 20100924, end: 20100924
  4. VALTREX [Suspect]
     Indication: HERPES ZOSTER
     Dosage: 2000MG PER DAY
     Route: 048
     Dates: start: 20100919, end: 20100920
  5. NELBON [Concomitant]
     Dosage: 5MG PER DAY
     Route: 048

REACTIONS (4)
  - DECREASED APPETITE [None]
  - ANURIA [None]
  - RENAL FAILURE ACUTE [None]
  - MALAISE [None]
